FAERS Safety Report 15989795 (Version 1)
Quarter: 2019Q1

REPORT INFORMATION
  Report Type: Spontaneous
  Country: US (occurrence: US)
  Receive Date: 20190125
  Receipt Date: 20190125
  Transmission Date: 20190418
  Serious: No
  Sender: FDA-Public Use
  Company Number: None

PATIENT
  Age: 53 Year
  Sex: Female

DRUGS (3)
  1. METHOTREXATE 50MG/2ML SDV INJ [Suspect]
     Active Substance: METHOTREXATE
     Indication: RHEUMATOID ARTHRITIS
     Dates: start: 201703, end: 201704
  2. FOLIC ACID. [Concomitant]
     Active Substance: FOLIC ACID
  3. ENBREL [Concomitant]
     Active Substance: ETANERCEPT

REACTIONS (2)
  - Lung disorder [None]
  - Immunosuppression [None]

NARRATIVE: CASE EVENT DATE: 20170331
